FAERS Safety Report 9335682 (Version 1)
Quarter: 2013Q2

REPORT INFORMATION
  Report Type: Spontaneous
  Country: JP (occurrence: JP)
  Receive Date: 20130607
  Receipt Date: 20130607
  Transmission Date: 20140414
  Serious: Yes (Hospitalization)
  Sender: FDA-Public Use
  Company Number: JP-ROCHE-1174536

PATIENT
  Age: 85 Year
  Sex: Female

DRUGS (16)
  1. RITUXIMAB [Suspect]
     Indication: LYMPHOMA
     Route: 042
     Dates: start: 20120530, end: 20120530
  2. RITUXIMAB [Suspect]
     Route: 042
  3. BAKTAR [Suspect]
     Indication: ANTIFUNGAL PROPHYLAXIS
     Dosage: FREQUENCY: DAILY
     Route: 048
     Dates: start: 20120519
  4. MEROPENEM [Suspect]
     Indication: INFECTION
     Route: 042
     Dates: start: 20120514, end: 20120524
  5. FUNGUARD [Suspect]
     Indication: INFECTION
     Route: 042
     Dates: start: 20120514, end: 20120524
  6. TAKEPRON [Suspect]
     Indication: GASTROOESOPHAGEAL REFLUX DISEASE
     Route: 048
     Dates: start: 20120518
  7. VALTREX [Suspect]
     Indication: PROPHYLAXIS
     Route: 048
     Dates: start: 20120519
  8. ISCOTIN [Suspect]
     Indication: PROPHYLAXIS
     Route: 048
     Dates: start: 20120519
  9. ITRIZOLE [Suspect]
     Indication: PROPHYLAXIS
     Route: 048
     Dates: start: 20120525
  10. PLAVIX [Suspect]
     Indication: PRODUCT USED FOR UNKNOWN INDICATION
     Route: 048
     Dates: start: 20120530, end: 20120601
  11. BARACLUDE [Suspect]
     Indication: HEPATITIS B
     Route: 048
     Dates: start: 20120531
  12. EVISTA [Suspect]
     Indication: OSTEOPOROSIS
     Route: 048
     Dates: start: 20120531
  13. PREDONINE [Concomitant]
     Indication: LYMPHOMA
     Route: 065
     Dates: start: 20120519, end: 20120520
  14. PREDONINE [Concomitant]
     Route: 065
     Dates: start: 20120521, end: 20120525
  15. PREDONINE [Concomitant]
     Route: 065
     Dates: start: 20120526, end: 20120530
  16. PREDONINE [Concomitant]
     Route: 065
     Dates: start: 20120531

REACTIONS (2)
  - Drug eruption [Recovered/Resolved]
  - Pruritus [Recovered/Resolved]
